FAERS Safety Report 15781727 (Version 2)
Quarter: 2020Q2

REPORT INFORMATION
  Report Type: Spontaneous
  Country: IL (occurrence: IL)
  Receive Date: 20190102
  Receipt Date: 20200429
  Transmission Date: 20200713
  Serious: Yes (Life-Threatening, Other)
  Sender: FDA-Public Use
  Company Number: IL-BRISTOL-MYERS SQUIBB COMPANY-BMS-2018-123177

PATIENT
  Age: 84 Year
  Sex: Male

DRUGS (2)
  1. PLAVIX [Concomitant]
     Active Substance: CLOPIDOGREL BISULFATE
     Indication: PRODUCT USED FOR UNKNOWN INDICATION
     Dosage: UNK
     Route: 065
  2. ELIQUIS [Suspect]
     Active Substance: APIXABAN
     Indication: TRANSCATHETER AORTIC VALVE IMPLANTATION
     Dosage: UNK
     Route: 065

REACTIONS (4)
  - Intentional product use issue [Unknown]
  - Normocytic anaemia [Not Recovered/Not Resolved]
  - Acute kidney injury [Unknown]
  - Blood potassium decreased [Unknown]
